FAERS Safety Report 6283180-5 (Version None)
Quarter: 2009Q3

REPORT INFORMATION
  Report Type: 
  Country: None (occurrence: None)
  Receive Date: 20090724
  Receipt Date: 20090720
  Transmission Date: 20100115
  Serious: Yes (Hospitalization)
  Sender: FDA-Public Use
  Company Number: B0584724A

PATIENT
  Sex: Male

DRUGS (1)
  1. AUGMENTIN '125' [Suspect]
     Indication: URINARY TRACT INFECTION
     Route: 048
     Dates: start: 20090320

REACTIONS (5)
  - ASTHENIA [None]
  - CHROMATURIA [None]
  - MIXED LIVER INJURY [None]
  - NAUSEA [None]
  - PRURITUS [None]
